FAERS Safety Report 5662780-7 (Version None)
Quarter: 2008Q1

REPORT INFORMATION
  Report Type: 
  Country: None (occurrence: None)
  Receive Date: 20080311
  Receipt Date: 20080311
  Transmission Date: 20080703
  Serious: Yes (Other)
  Sender: FDA-Public Use
  Company Number: None

PATIENT
  Sex: Female
  Weight: 81.6475 kg

DRUGS (1)
  1. XOPENEX HFA [Suspect]
     Indication: ASTHMA
     Dosage: 2 METERED DOSES PRN PO
     Route: 048
     Dates: start: 20080201, end: 20080308

REACTIONS (2)
  - DRUG INEFFECTIVE [None]
  - HEADACHE [None]
